FAERS Safety Report 5868551-0 (Version None)
Quarter: 2008Q3

REPORT INFORMATION
  Report Type: 
  Country: None (occurrence: None)
  Receive Date: 20080903
  Receipt Date: 20080826
  Transmission Date: 20090109
  Serious: Yes (Hospitalization, Other)
  Sender: FDA-Public Use
  Company Number: CH-WYE-G02073708

PATIENT
  Age: 64 Year
  Sex: Male

DRUGS (3)
  1. TEMSIROLIMUS [Suspect]
     Indication: METASTATIC RENAL CELL CARCINOMA
     Dosage: UNSPECIFIED
     Dates: start: 20080601, end: 20080101
  2. TEMSIROLIMUS [Suspect]
     Dosage: UNSPECIFIED
     Dates: start: 20080101
  3. CORTICOSTEROID NOS [Concomitant]

REACTIONS (4)
  - BLOOD GLUCOSE FLUCTUATION [None]
  - HYPOTENSION [None]
  - PNEUMONIA [None]
  - THROMBOCYTOPENIA [None]
